FAERS Safety Report 13954601 (Version 1)
Quarter: 2017Q3

REPORT INFORMATION
  Report Type: Report from Study
  Country: CN (occurrence: CN)
  Receive Date: 20170911
  Receipt Date: 20170911
  Transmission Date: 20171128
  Serious: Yes (Other)
  Sender: FDA-Public Use
  Company Number: CN-MYLANLABS-2017M1055769

PATIENT
  Age: 25 Year
  Sex: Female

DRUGS (7)
  1. PREDNISONE. [Suspect]
     Active Substance: PREDNISONE
     Dosage: 2.5MG/DAY EVERY TWO WEEKS FOLLOWED BY 10MG/DAY MAINTENANCE DOSE
     Route: 048
  2. PREDNISONE. [Suspect]
     Active Substance: PREDNISONE
     Dosage: 5MG/DAY ONCE IN 2WEEKS, FOLLOWED BY 20MG/DAY DOSE
     Route: 048
  3. PREDNISONE. [Suspect]
     Active Substance: PREDNISONE
     Indication: LUPUS NEPHRITIS
     Dosage: 0.6 MG/KG, QD
     Route: 048
  4. PREDNISONE. [Suspect]
     Active Substance: PREDNISONE
     Dosage: 20MG/DAY FOLLOWED BY 2.5MG/DAY DOSE
     Route: 048
  5. BORTEZOMIB [Suspect]
     Active Substance: BORTEZOMIB
     Indication: LUPUS NEPHRITIS
     Dosage: 1.3MG/M 2 OF THE BODY SURFACE AREA ON DAYS 1, 4, 8 AND 11 ON A 21-DAY CYCLE
     Route: 040
  6. METHYLPREDNISOLONE. [Suspect]
     Active Substance: METHYLPREDNISOLONE
     Indication: LUPUS NEPHRITIS
     Dosage: 0.5G/DAY
     Route: 042
  7. PREDNISONE. [Suspect]
     Active Substance: PREDNISONE
     Dosage: 10MG/DAY MAINTENANCE DOSE
     Route: 048

REACTIONS (2)
  - Haematuria [Recovered/Resolved]
  - Thrombocytopenia [Recovered/Resolved]
